FAERS Safety Report 23060082 (Version 1)
Quarter: 2023Q4

REPORT INFORMATION
  Report Type: Spontaneous
  Country: TW (occurrence: TW)
  Receive Date: 20231012
  Receipt Date: 20231012
  Transmission Date: 20240110
  Serious: Yes (Other)
  Sender: FDA-Public Use
  Company Number: TW-FreseniusKabi-FK202316295

PATIENT
  Age: 46 Year
  Sex: Male

DRUGS (6)
  1. ETOPOSIDE [Suspect]
     Active Substance: ETOPOSIDE
     Indication: Small cell lung cancer metastatic
     Dosage: 3 CYCLE
  2. ETOPOSIDE [Suspect]
     Active Substance: ETOPOSIDE
     Indication: Hepatic cancer metastatic
  3. PLATINUM [Suspect]
     Active Substance: PLATINUM
     Indication: Small cell lung cancer metastatic
     Dosage: 3 CYCLE
  4. PLATINUM [Suspect]
     Active Substance: PLATINUM
     Indication: Hepatic cancer metastatic
  5. ATEZOLIZUMAB [Suspect]
     Active Substance: ATEZOLIZUMAB
     Indication: Small cell lung cancer metastatic
     Dosage: 3 CYCLE
  6. ATEZOLIZUMAB [Suspect]
     Active Substance: ATEZOLIZUMAB
     Indication: Hepatic cancer metastatic

REACTIONS (1)
  - Polyneuropathy [Recovered/Resolved]
